FAERS Safety Report 15250371 (Version 2)
Quarter: 2018Q3

REPORT INFORMATION
  Report Type: Spontaneous
  Country: US (occurrence: US)
  Receive Date: 20180807
  Receipt Date: 20180810
  Transmission Date: 20181010
  Serious: No
  Sender: FDA-Public Use
  Company Number: PHEH2018US031985

PATIENT
  Sex: Female

DRUGS (2)
  1. VOTRIENT [Suspect]
     Active Substance: PAZOPANIB HYDROCHLORIDE
     Indication: ABDOMINAL DISTENSION
     Dosage: 200 MG, QD
     Route: 048
     Dates: start: 20180619
  2. VOTRIENT [Suspect]
     Active Substance: PAZOPANIB HYDROCHLORIDE
     Dosage: 3 DF, QD
     Route: 048
     Dates: start: 20180619

REACTIONS (2)
  - Product use in unapproved indication [Unknown]
  - Urticaria [Recovered/Resolved]
